FAERS Safety Report 10591627 (Version 2)
Quarter: 2014Q4

REPORT INFORMATION
  Report Type: Spontaneous
  Country: FR (occurrence: FR)
  Receive Date: 20141118
  Receipt Date: 20141201
  Transmission Date: 20150529
  Serious: Yes (Hospitalization)
  Sender: FDA-Public Use
  Company Number: ALCN2014FR006322

PATIENT
  Age: 2 Year
  Sex: Female
  Weight: 11 kg

DRUGS (1)
  1. ATROPINE SULFATE. [Suspect]
     Active Substance: ATROPINE SULFATE
     Indication: FUNDOSCOPY
     Dosage: 7 GTT, QD
     Route: 047
     Dates: start: 20140919, end: 20140919

REACTIONS (6)
  - Accidental overdose [Recovered/Resolved]
  - Tachycardia [Recovered/Resolved]
  - Skin warm [Recovered/Resolved]
  - Mydriasis [Recovered/Resolved]
  - Asthenia [Recovered/Resolved]
  - Rash [Recovered/Resolved]

NARRATIVE: CASE EVENT DATE: 20140919
